FAERS Safety Report 5638412-0 (Version None)
Quarter: 2008Q1

REPORT INFORMATION
  Report Type: 
  Country: None (occurrence: None)
  Receive Date: 20080221
  Receipt Date: 20080129
  Transmission Date: 20080703
  Serious: Yes (Hospitalization)
  Sender: FDA-Public Use
  Company Number: E-08-023

PATIENT
  Age: 17 Year
  Sex: Female

DRUGS (5)
  1. PHENOBARBITAL TAB [Suspect]
     Indication: CONVULSION
     Dosage: TTT PO H.S.
     Route: 048
     Dates: start: 20080105, end: 20080122
  2. DEPAKOTE [Concomitant]
  3. TRANXENE [Concomitant]
  4. TOPROL [Concomitant]
  5. MIDODRINE [Concomitant]

REACTIONS (2)
  - ANTICONVULSANT DRUG LEVEL BELOW THERAPEUTIC [None]
  - CONVULSION [None]
